FAERS Safety Report 23519466 (Version 2)
Quarter: 2024Q2

REPORT INFORMATION
  Report Type: Spontaneous
  Country: US (occurrence: US)
  Receive Date: 20240213
  Receipt Date: 20240420
  Transmission Date: 20240716
  Serious: Yes (Hospitalization, Other)
  Sender: FDA-Public Use
  Company Number: US-SANOFI-01933982

PATIENT
  Age: 39 Year
  Sex: Female
  Weight: 91.6 kg

DRUGS (3)
  1. FERRLECIT [Suspect]
     Active Substance: SODIUM FERRIC GLUCONATE COMPLEX
     Indication: Iron deficiency anaemia
     Dosage: 250 MG
     Route: 041
     Dates: start: 20240131, end: 20240131
  2. ACETAMINOPHEN [Concomitant]
     Active Substance: ACETAMINOPHEN
     Dosage: UNK
  3. DIPHENHYDRAMINE [Concomitant]
     Active Substance: DIPHENHYDRAMINE
     Dosage: UNK, TOTAL
     Route: 048

REACTIONS (6)
  - Anaphylactic reaction [Recovered/Resolved]
  - Laryngeal oedema [Recovered/Resolved]
  - Blood pressure decreased [Recovered/Resolved]
  - Unresponsive to stimuli [Recovered/Resolved]
  - Communication disorder [Recovered/Resolved]
  - Prescribed overdose [Unknown]

NARRATIVE: CASE EVENT DATE: 20240131
